FAERS Safety Report 6521227-9 (Version None)
Quarter: 2009Q4

REPORT INFORMATION
  Report Type: 
  Country: None (occurrence: None)
  Receive Date: 20091230
  Receipt Date: 20091221
  Transmission Date: 20100525
  Serious: Yes (Hospitalization, Other)
  Sender: FDA-Public Use
  Company Number: US-BIOGENIDEC-2009BI034022

PATIENT
  Age: 36 Year
  Sex: Female

DRUGS (1)
  1. TYSABRI [Suspect]
     Indication: CROHN'S DISEASE
     Route: 042
     Dates: start: 20090116, end: 20090212

REACTIONS (5)
  - DECREASED IMMUNE RESPONSIVENESS [None]
  - INFECTIOUS MONONUCLEOSIS [None]
  - NEOPLASM MALIGNANT [None]
  - ORAL HERPES [None]
  - VIRAL INFECTION [None]
